FAERS Safety Report 20554708 (Version 1)
Quarter: 2022Q1

REPORT INFORMATION
  Report Type: Spontaneous
  Country: US (occurrence: None)
  Receive Date: 20220304
  Receipt Date: 20220304
  Transmission Date: 20220423
  Serious: Yes (Death)
  Sender: FDA-Public Use
  Company Number: None

PATIENT
  Age: 84 Year
  Sex: Female
  Weight: 65.8 kg

DRUGS (8)
  1. AZITHROMYCIN [Suspect]
     Active Substance: AZITHROMYCIN
     Indication: COVID-19 pneumonia
     Dosage: FREQUENCY : DAILY;?
     Route: 041
     Dates: start: 20220215, end: 20220219
  2. APIXABAN [Concomitant]
     Active Substance: APIXABAN
     Dates: start: 20220215, end: 20220220
  3. Ceftriaxone 1 g [Concomitant]
     Dates: start: 20220215, end: 20220219
  4. Dexamethasone 6 mg [Concomitant]
     Dates: start: 20220215, end: 20220227
  5. FAMOTIDINE [Concomitant]
     Active Substance: FAMOTIDINE
     Dates: start: 20220217, end: 20220219
  6. Fluticasone-Salmeterol 250 mcg-50 mcg [Concomitant]
     Dates: start: 20220215, end: 20220219
  7. METOPROLOL TARTRATE [Concomitant]
     Active Substance: METOPROLOL TARTRATE
     Dates: start: 20220216, end: 20220219
  8. REMDESIVIR [Concomitant]
     Active Substance: REMDESIVIR
     Dates: start: 20220215, end: 20220218

REACTIONS (3)
  - Oxygen saturation decreased [None]
  - Unresponsive to stimuli [None]
  - Cardiac arrest [None]

NARRATIVE: CASE EVENT DATE: 20220219
